FAERS Safety Report 5908905-7 (Version None)
Quarter: 2008Q4

REPORT INFORMATION
  Report Type: 
  Country: None (occurrence: None)
  Receive Date: 20081006
  Receipt Date: 20080925
  Transmission Date: 20090506
  Serious: Yes (Other)
  Sender: FDA-Public Use
  Company Number: JP-MERCK-0809USA04992

PATIENT
  Age: 78 Year
  Sex: Male

DRUGS (9)
  1. PEPCID RPD [Suspect]
     Route: 048
  2. HERBS (UNSPECIFIED) [Suspect]
     Route: 048
  3. OPALMON [Suspect]
     Route: 048
  4. PLAVIX [Concomitant]
     Route: 048
  5. ARICEPT [Concomitant]
     Route: 048
  6. EURODIN [Concomitant]
     Route: 048
  7. NEUROTROPIN [Concomitant]
     Route: 048
  8. LOXONIN [Concomitant]
     Route: 048
  9. MUCOSTA [Concomitant]
     Route: 048

REACTIONS (1)
  - INTERSTITIAL LUNG DISEASE [None]
